FAERS Safety Report 18499897 (Version 1)
Quarter: 2020Q4

REPORT INFORMATION
  Report Type: Spontaneous
  Country: DE (occurrence: DE)
  Receive Date: 20201112
  Receipt Date: 20201112
  Transmission Date: 20210114
  Serious: Yes (Life-Threatening, Hospitalization, Other)
  Sender: FDA-Public Use
  Company Number: DE-009507513-2011DEU006390

PATIENT
  Age: 48 Year
  Sex: Male

DRUGS (8)
  1. METFORMIN [Suspect]
     Active Substance: METFORMIN HYDROCHLORIDE
     Dosage: 850 MILLIGRAM (MG), 1-0-0-0
  2. GABAPENTIN. [Concomitant]
     Active Substance: GABAPENTIN
     Dosage: 300 MILLIGRAM (MG), 1-1-1-0
  3. LANTUS [Suspect]
     Active Substance: INSULIN GLARGINE
     Dosage: 10 INTERNATIONAL UNIT (IE), 0-0-0-1
  4. LEVETIRACETAM. [Concomitant]
     Active Substance: LEVETIRACETAM
     Dosage: 500 MILLIGRAM (MG), 1-0-1-0
  5. SITAGLIPTIN PHOSPHATE [Suspect]
     Active Substance: SITAGLIPTIN PHOSPHATE
     Dosage: 50 MILLIGRAM (MG), 1-0-0-0
  6. APIDRA [Suspect]
     Active Substance: INSULIN GLULISINE
     Dosage: 12 INTERNATIONAL UNIT (IE), 1-1-1-0
  7. MIRTAZAPINE. [Concomitant]
     Active Substance: MIRTAZAPINE
     Dosage: 30 MILLIGRAM (MG), 0-0-0-1
     Route: 048
  8. SUBUTEX [Concomitant]
     Active Substance: BUPRENORPHINE HYDROCHLORIDE
     Dosage: 16 MILLIGRAM (MG), 1-0-0-0

REACTIONS (3)
  - Depressed level of consciousness [Unknown]
  - Loss of consciousness [Unknown]
  - Hypoglycaemia [Unknown]
